FAERS Safety Report 25023788 (Version 1)
Quarter: 2025Q1

REPORT INFORMATION
  Report Type: Spontaneous
  Country: US (occurrence: None)
  Receive Date: 20250228
  Receipt Date: 20250228
  Transmission Date: 20250408
  Serious: Yes (Hospitalization)
  Sender: FDA-CTU
  Company Number: None

PATIENT
  Age: 87 Year
  Sex: Male
  Weight: 94 kg

DRUGS (1)
  1. APIXABAN [Suspect]
     Active Substance: APIXABAN
     Indication: Atrial fibrillation
     Dosage: FREQUENCY : TWICE A DAY;?
     Route: 048
     Dates: start: 20190724, end: 20240304

REACTIONS (4)
  - Dyspnoea [None]
  - Oedema peripheral [None]
  - Subdural haematoma [None]
  - Therapy cessation [None]

NARRATIVE: CASE EVENT DATE: 20240304
